FAERS Safety Report 7208377-9 (Version None)
Quarter: 2011Q1

REPORT INFORMATION
  Report Type: 
  Country: None (occurrence: None)
  Receive Date: 20110104
  Receipt Date: 20101222
  Transmission Date: 20110831
  Serious: Yes (Hospitalization)
  Sender: FDA-Public Use
  Company Number: PHFR2010GB05507

PATIENT
  Sex: Female

DRUGS (5)
  1. CLOZARIL [Suspect]
     Dosage: 600 MG, UNK
     Dates: start: 20090101
  2. CLOZARIL [Suspect]
     Indication: SCHIZOPHRENIA
     Dosage: UNK
     Route: 048
     Dates: start: 20090112
  3. DOMPERIDONE [Concomitant]
     Indication: VOMITING
  4. DOMPERIDONE [Concomitant]
     Indication: NAUSEA
     Dosage: 30 MG, UNK
     Route: 048
     Dates: start: 20090901
  5. HYOSCINE HBR HYT [Concomitant]
     Dosage: 150 UG, UNK
     Route: 048
     Dates: start: 20090301

REACTIONS (5)
  - GASTROINTESTINAL STROMAL TUMOUR [None]
  - ANAEMIA [None]
  - CIRCULATORY COLLAPSE [None]
  - VOMITING [None]
  - TUMOUR EXCISION [None]
